FAERS Safety Report 9499542 (Version 2)
Quarter: 2015Q1

REPORT INFORMATION
  Report Type: Spontaneous
  Country: DK (occurrence: DK)
  Receive Date: 20130905
  Receipt Date: 20150217
  Transmission Date: 20150721
  Serious: Yes (Hospitalization)
  Sender: FDA-Public Use
  Company Number: DK-RANBAXY-2013R1-72632

PATIENT
  Age: 40 Year
  Sex: Male

DRUGS (2)
  1. NORTRIPTYLINE [Suspect]
     Active Substance: NORTRIPTYLINE
     Indication: PRODUCT USED FOR UNKNOWN INDICATION
     Dosage: UNK
     Route: 065
  2. LITHIUM [Suspect]
     Active Substance: LITHIUM CARBONATE
     Indication: PRODUCT USED FOR UNKNOWN INDICATION
     Dosage: UNK
     Route: 065

REACTIONS (5)
  - Cardiac arrest [Recovering/Resolving]
  - Loss of consciousness [Recovering/Resolving]
  - Suicide attempt [Recovering/Resolving]
  - Haemodynamic instability [Recovering/Resolving]
  - Toxicity to various agents [Recovering/Resolving]
